FAERS Safety Report 5270028-0 (Version None)
Quarter: 2007Q1

REPORT INFORMATION
  Report Type: 
  Country: None (occurrence: None)
  Receive Date: 20061214
  Receipt Date: 20060426
  Transmission Date: 20070707
  Serious: Yes (Hospitalization)
  Sender: FDA-Public Use
  Company Number: 2006058769

PATIENT
  Age: 59 Year
  Sex: Female
  Weight: 113.3993 kg

DRUGS (1)
  1. BEXTRA [Suspect]
     Indication: ARTHRITIS
     Dosage: 25 MG (25 MG, 1 IN 1 D);
     Dates: start: 20000101

REACTIONS (2)
  - CARDIAC FAILURE CONGESTIVE [None]
  - DIABETES MELLITUS [None]
